FAERS Safety Report 20931572 (Version 1)
Quarter: 2022Q2

REPORT INFORMATION
  Report Type: Spontaneous
  Country: US (occurrence: None)
  Receive Date: 20220608
  Receipt Date: 20220608
  Transmission Date: 20220721
  Serious: No
  Sender: FDA-Public Use
  Company Number: US-ROCHE-2892298

PATIENT
  Age: 46 Year
  Sex: Male
  Weight: 106.24 kg

DRUGS (3)
  1. ACTEMRA [Suspect]
     Active Substance: TOCILIZUMAB
     Indication: COVID-19 pneumonia
     Dosage: NO
     Route: 065
     Dates: start: 20210723
  2. ZINC [Concomitant]
     Active Substance: ZINC
     Indication: COVID-19 pneumonia
     Dosage: 1 TABLET IN THE MORNING
     Route: 048
  3. VITAMIN C [Concomitant]
     Active Substance: ASCORBIC ACID
     Indication: COVID-19 pneumonia
     Route: 048

REACTIONS (5)
  - Anxiety [Unknown]
  - Cough [Not Recovered/Not Resolved]
  - Haemoptysis [Unknown]
  - Weight decreased [Unknown]
  - Off label use [Unknown]

NARRATIVE: CASE EVENT DATE: 20210810
